FAERS Safety Report 6395548-7 (Version None)
Quarter: 2009Q4

REPORT INFORMATION
  Report Type: 
  Country: None (occurrence: None)
  Receive Date: 20091009
  Receipt Date: 20090929
  Transmission Date: 20100525
  Serious: Yes (Other)
  Sender: FDA-Public Use
  Company Number: US-PFIZER INC-2009279988

PATIENT
  Sex: Female
  Weight: 43.084 kg

DRUGS (2)
  1. ZOLOFT [Suspect]
     Indication: ANXIETY
     Dates: start: 20090926, end: 20090927
  2. CONCERTA [Concomitant]

REACTIONS (5)
  - ABASIA [None]
  - FALL [None]
  - HYPERTONIA [None]
  - INJURY [None]
  - MUSCLE TIGHTNESS [None]
